FAERS Safety Report 5607578-0 (Version None)
Quarter: 2008Q1

REPORT INFORMATION
  Report Type: 
  Country: None (occurrence: None)
  Receive Date: 20080130
  Receipt Date: 20080118
  Transmission Date: 20080703
  Serious: Yes (Hospitalization, Other)
  Sender: FDA-Public Use
  Company Number: HQWYE731203AUG04

PATIENT
  Sex: Female
  Weight: 61.29 kg

DRUGS (3)
  1. PREMPRO [Suspect]
  2. PROVERA [Suspect]
  3. PREMARIN [Suspect]

REACTIONS (4)
  - ANGINA UNSTABLE [None]
  - BREAST CANCER [None]
  - CAROTID ARTERY STENOSIS [None]
  - MYOCARDIAL INFARCTION [None]
